FAERS Safety Report 6694346-4 (Version None)
Quarter: 2010Q2

REPORT INFORMATION
  Report Type: 
  Country: None (occurrence: None)
  Receive Date: 20100423
  Receipt Date: 20100412
  Transmission Date: 20101027
  Serious: Yes (Other)
  Sender: FDA-Public Use
  Company Number: US-PFIZER INC-2010039119

PATIENT
  Sex: Female

DRUGS (1)
  1. GEODON [Suspect]
     Dosage: 60 MG, 2X/DAY

REACTIONS (3)
  - MUSCLE SPASMS [None]
  - SWELLING FACE [None]
  - VISION BLURRED [None]
